FAERS Safety Report 5067701-6 (Version None)
Quarter: 2006Q3

REPORT INFORMATION
  Report Type: 
  Country: None (occurrence: None)
  Receive Date: 20060728
  Receipt Date: 20060711
  Transmission Date: 20061208
  Serious: Yes (Hospitalization)
  Sender: FDA-Public Use
  Company Number: FR200605001648

PATIENT
  Age: 73 Year
  Sex: Female
  Weight: 54.0234 kg

DRUGS (7)
  1. FORTEO [Suspect]
     Indication: OSTEOPOROSIS
     Dosage: 20 UG DAILY (1/D) SUBCUTANEOUS
     Route: 058
     Dates: start: 20060309
  2. FORTEO PEN (FORTEO PEN) [Concomitant]
  3. LEVOTHYROXINE SODIUM [Concomitant]
  4. FLECAINIDE ACETATE [Concomitant]
  5. SECTRAL [Concomitant]
  6. ASPIRIN [Concomitant]
  7. LASIX [Concomitant]

REACTIONS (4)
  - BRONCHOSPASM [None]
  - HYPERALDOSTERONISM [None]
  - HYPONATRAEMIA [None]
  - PULMONARY HYPERTENSION [None]
